FAERS Safety Report 12726840 (Version 1)
Quarter: 2016Q3

REPORT INFORMATION
  Report Type: Spontaneous
  Country: US (occurrence: US)
  Receive Date: 20160908
  Receipt Date: 20160908
  Transmission Date: 20161109
  Serious: No
  Sender: FDA-Public Use
  Company Number: US-ASTRAZENECA-2016SE66461

PATIENT
  Sex: Female

DRUGS (2)
  1. AROMASIN [Suspect]
     Active Substance: EXEMESTANE
     Dosage: ONCE DAILY AFTER MEAL
     Route: 048
  2. ANASTRAZOLE [Suspect]
     Active Substance: ANASTROZOLE
     Indication: BREAST CANCER FEMALE
     Route: 048
     Dates: start: 201603

REACTIONS (11)
  - Hyperhidrosis [Unknown]
  - Abdominal discomfort [Unknown]
  - Grip strength decreased [Unknown]
  - Limb discomfort [Unknown]
  - Myalgia [Unknown]
  - Headache [Unknown]
  - Insomnia [Unknown]
  - Flushing [Unknown]
  - Pain [Unknown]
  - Pain in extremity [Unknown]
  - Depression [Unknown]

NARRATIVE: CASE EVENT DATE: 201603
